FAERS Safety Report 21020357 (Version 1)
Quarter: 2022Q2

REPORT INFORMATION
  Report Type: Spontaneous
  Country: CH (occurrence: CH)
  Receive Date: 20220629
  Receipt Date: 20220629
  Transmission Date: 20220720
  Serious: Yes (Other)
  Sender: FDA-Public Use
  Company Number: CH-STRIDES ARCOLAB LIMITED-2022SP007806

PATIENT
  Age: 69 Year
  Sex: Female

DRUGS (2)
  1. ALBENDAZOLE [Suspect]
     Active Substance: ALBENDAZOLE
     Indication: Hepatic echinococciasis
     Dosage: UNK
     Route: 065
  2. CANDESARTAN [Concomitant]
     Active Substance: CANDESARTAN
     Indication: Product used for unknown indication
     Dosage: UNK
     Route: 065

REACTIONS (6)
  - Septic shock [Unknown]
  - Drug-induced liver injury [Unknown]
  - Acute kidney injury [Unknown]
  - Aplasia [Unknown]
  - Jaundice [Unknown]
  - Alopecia [Unknown]
